FAERS Safety Report 8322715-5 (Version None)
Quarter: 2012Q2

REPORT INFORMATION
  Report Type: 
  Country: None (occurrence: None)
  Receive Date: 20120426
  Receipt Date: 20120411
  Transmission Date: 20120825
  Serious: Yes (Hospitalization)
  Sender: FDA-Public Use
  Company Number: JPI-P-020892

PATIENT
  Age: 44 Year
  Sex: Male

DRUGS (2)
  1. XYREM [Suspect]
     Indication: NARCOLEPSY
     Dosage: 4.5 GM (2.25 GM,2 IN 1 D),ORAL ; (3.25 GM 1ST DOSE/2.25 GM 2ND DOSE),ORAL
     Route: 048
     Dates: start: 20110706
  2. XYREM [Suspect]
     Indication: NARCOLEPSY
     Dosage: 4.5 GM (2.25 GM,2 IN 1 D),ORAL ; (3.25 GM 1ST DOSE/2.25 GM 2ND DOSE),ORAL
     Route: 048
     Dates: start: 20110810

REACTIONS (2)
  - NEPHROLITHIASIS [None]
  - NASOPHARYNGITIS [None]
